FAERS Safety Report 4900686-9 (Version None)
Quarter: 2005Q4

REPORT INFORMATION
  Report Type: 
  Country: None (occurrence: None)
  Receive Date: 20051221
  Receipt Date: 20051018
  Transmission Date: 20060501
  Serious: No
  Sender: FDA-Public Use
  Company Number: US-YAMANOUCHI-YPA20050543

PATIENT
  Age: 85 Year
  Sex: Female
  Weight: 49.8957 kg

DRUGS (8)
  1. VESICARE [Suspect]
     Indication: POLLAKIURIA
     Dosage: 5 MG QD PO
     Route: 048
     Dates: start: 20051014, end: 20051020
  2. NORVASC [Concomitant]
  3. DYAZIDE [Concomitant]
  4. HYDROCHLOROTHIAZIDE [Concomitant]
  5. ZETIA [Concomitant]
  6. LIPITOR [Concomitant]
  7. CENTRUM SILVER [Concomitant]
  8. OSCAL [Concomitant]

REACTIONS (2)
  - HYPERTENSION [None]
  - VISION BLURRED [None]
